FAERS Safety Report 6856690-7 (Version None)
Quarter: 2010Q3

REPORT INFORMATION
  Report Type: 
  Country: None (occurrence: None)
  Receive Date: 20100719
  Receipt Date: 20100710
  Transmission Date: 20110219
  Serious: Yes (Other)
  Sender: FDA-Public Use
  Company Number: US-BAYER-201014402GPV

PATIENT
  Age: 73 Year
  Sex: Male

DRUGS (2)
  1. ALEMTUZUMAB [Suspect]
     Indication: ANGIOIMMUNOBLASTIC T-CELL LYMPHOMA RECURRENT
     Dosage: 6 CYCLES
     Route: 042
     Dates: start: 20070601, end: 20070101
  2. CYTOXAN [Concomitant]
     Indication: LYMPHADENOPATHY
     Dosage: 1 CYCLE

REACTIONS (4)
  - AGRANULOCYTOSIS [None]
  - ANAEMIA HAEMOLYTIC AUTOIMMUNE [None]
  - BRONCHOPULMONARY ASPERGILLOSIS [None]
  - PANCYTOPENIA [None]
